FAERS Safety Report 5867008-0 (Version None)
Quarter: 2008Q3

REPORT INFORMATION
  Report Type: 
  Country: None (occurrence: None)
  Receive Date: 20080902
  Receipt Date: 20080826
  Transmission Date: 20090109
  Serious: Yes (Other)
  Sender: FDA-Public Use
  Company Number: A0744442A

PATIENT
  Age: 55 Year
  Sex: Male

DRUGS (2)
  1. ARIXTRA [Suspect]
     Dosage: 2.5MG PER DAY
     Route: 058
     Dates: start: 20080401, end: 20080501
  2. AVAPRO [Concomitant]

REACTIONS (8)
  - BURNING SENSATION [None]
  - ERYTHEMA [None]
  - FEELING HOT [None]
  - GENITAL DISCOMFORT [None]
  - HYPERAESTHESIA [None]
  - RASH MACULAR [None]
  - SKIN ATROPHY [None]
  - SKIN EXFOLIATION [None]
